FAERS Safety Report 6077474-6 (Version None)
Quarter: 2009Q1

REPORT INFORMATION
  Report Type: 
  Country: None (occurrence: None)
  Receive Date: 20090213
  Receipt Date: 20081202
  Transmission Date: 20090719
  Serious: No
  Sender: FDA-Public Use
  Company Number: A0758720A

PATIENT
  Age: 38 Year
  Sex: Female

DRUGS (4)
  1. TREXIMET [Suspect]
     Indication: MIGRAINE
     Dosage: 85MG AS REQUIRED
     Route: 048
     Dates: start: 20080501, end: 20080501
  2. BUPROPION HCL [Concomitant]
  3. BIRTH CONTROL [Concomitant]
  4. ADVAIR DISKUS 100/50 [Concomitant]

REACTIONS (3)
  - FATIGUE [None]
  - INFLUENZA [None]
  - PAIN [None]
